FAERS Safety Report 10472899 (Version 3)
Quarter: 2014Q4

REPORT INFORMATION
  Report Type: Spontaneous
  Country: CH (occurrence: None)
  Receive Date: 20140922
  Receipt Date: 20141030
  Transmission Date: 20150528
  Serious: Yes (Other)
  Sender: FDA-Public Use
  Company Number: 20140606

PATIENT
  Sex: Female
  Weight: 75 kg

DRUGS (7)
  1. PANTOGAR (CYSTINE) [Concomitant]
  2. VITERGAN PLUS [Concomitant]
  3. FERINJECT [Suspect]
     Active Substance: FERRIC CARBOXYMALTOSE
     Indication: IRON DEFICIENCY ANAEMIA
     Dosage: 1000 MG (1000 MG,1 IN 1 TOTAL)
     Route: 041
     Dates: start: 20140702, end: 20140702
  4. VITAMINS NOS [Concomitant]
     Active Substance: VITAMINS
  5. LEVOTHYROXINE SODIUM. [Concomitant]
     Active Substance: LEVOTHYROXINE SODIUM
  6. DEPURA (RETINOL) [Concomitant]
  7. PYRIDOXINE HYDROCHLORIDE. [Concomitant]
     Active Substance: PYRIDOXINE HYDROCHLORIDE

REACTIONS (5)
  - Syncope [None]
  - Loss of consciousness [None]
  - Rash [None]
  - Headache [None]
  - Application site coldness [None]

NARRATIVE: CASE EVENT DATE: 20140702
